FAERS Safety Report 17252035 (Version 1)
Quarter: 2020Q1

REPORT INFORMATION
  Report Type: Spontaneous
  Country: CN (occurrence: CN)
  Receive Date: 20200109
  Receipt Date: 20200109
  Transmission Date: 20200409
  Serious: Yes (Death)
  Sender: FDA-Public Use
  Company Number: CN-PFIZER INC-2020002015

PATIENT
  Age: 6 Year
  Sex: Male

DRUGS (2)
  1. TIENAM [Suspect]
     Active Substance: CILASTATIN SODIUM\IMIPENEM
     Dosage: UNK
  2. TIGECYCLINE. [Suspect]
     Active Substance: TIGECYCLINE
     Dosage: UNK

REACTIONS (3)
  - Off label use [Unknown]
  - Product use issue [Unknown]
  - Drug ineffective [Fatal]
